FAERS Safety Report 9580365 (Version 1)
Quarter: 2013Q4

REPORT INFORMATION
  Report Type: Spontaneous
  Country: AU (occurrence: AU)
  Receive Date: 20131002
  Receipt Date: 20131002
  Transmission Date: 20140711
  Serious: Yes (Other)
  Sender: FDA-Public Use
  Company Number: AU-NAPPMUNDI-USA-2013-0106890

PATIENT
  Age: 67 Year
  Sex: Female

DRUGS (1)
  1. NORSPAN (NDA 21-306) [Suspect]
     Indication: PRODUCT USED FOR UNKNOWN INDICATION
     Dosage: 20 MCG/HR, WEEKLY
     Route: 062
     Dates: start: 2011

REACTIONS (3)
  - Hip arthroplasty [Unknown]
  - Cataract operation [Unknown]
  - Arthralgia [Not Recovered/Not Resolved]
